FAERS Safety Report 18539914 (Version 1)
Quarter: 2020Q4

REPORT INFORMATION
  Report Type: Spontaneous
  Country: US (occurrence: US)
  Receive Date: 20201005
  Receipt Date: 20201005
  Transmission Date: 20210114
  Serious: No
  Sender: FDA-Public Use
  Company Number: None

PATIENT
  Age: 27 Year
  Sex: Female

DRUGS (5)
  1. SHUANGHUANGLIAN [Suspect]
     Active Substance: HERBALS
     Indication: COVID-19
     Dates: start: 2020
  2. OSELTAMIVIR [Suspect]
     Active Substance: OSELTAMIVIR
  3. MOXIFLOXACIN. [Suspect]
     Active Substance: MOXIFLOXACIN
  4. JINYEBAIDU [Suspect]
     Active Substance: HERBALS
  5. UMIFENOVIR. [Suspect]
     Active Substance: UMIFENOVIR

REACTIONS (7)
  - Vomiting [None]
  - Chest discomfort [None]
  - Dyspnoea [None]
  - Pneumonia [None]
  - Asthenia [None]
  - Off label use [None]
  - Diarrhoea [None]
